FAERS Safety Report 19908914 (Version 2)
Quarter: 2021Q4

REPORT INFORMATION
  Report Type: Report from Study
  Country: ML (occurrence: ML)
  Receive Date: 20211001
  Receipt Date: 20211018
  Transmission Date: 20220303
  Serious: Yes (Life-Threatening, Hospitalization)
  Sender: FDA-Public Use
  Company Number: ML-PFIZER INC-202101230436

PATIENT
  Sex: Female

DRUGS (4)
  1. AZITHROMYCIN ANHYDROUS [Suspect]
     Active Substance: AZITHROMYCIN ANHYDROUS
     Indication: Prophylaxis
     Dosage: UNK UNK, SINGLE
     Route: 048
     Dates: start: 20210806, end: 20210806
  2. PLACEBO [Suspect]
     Active Substance: UNSPECIFIED INGREDIENT
     Indication: Prophylaxis
     Dosage: UNK UNK, SINGLE
     Route: 048
     Dates: start: 20210806, end: 20210806
  3. AZITHROMYCIN ANHYDROUS [Suspect]
     Active Substance: AZITHROMYCIN ANHYDROUS
     Dosage: SINGLE DELIVERY DOSE
     Route: 048
     Dates: start: 20210910, end: 20210910
  4. PLACEBO [Suspect]
     Active Substance: UNSPECIFIED INGREDIENT
     Dosage: SINGLE DELIVERY DOSE
     Route: 048
     Dates: start: 20210910, end: 20210910

REACTIONS (2)
  - Anaemia of pregnancy [Recovered/Resolved]
  - Maternal exposure during pregnancy [Recovered/Resolved]

NARRATIVE: CASE EVENT DATE: 20210806
